FAERS Safety Report 6782681-0 (Version None)
Quarter: 2010Q2

REPORT INFORMATION
  Report Type: 
  Country: None (occurrence: None)
  Receive Date: 20100621
  Receipt Date: 20100609
  Transmission Date: 20101027
  Serious: Yes (Disabling, Other)
  Sender: FDA-Public Use
  Company Number: US-WYE-H15613110

PATIENT
  Sex: Female
  Weight: 95.34 kg

DRUGS (11)
  1. EFFEXOR XR [Suspect]
     Indication: DEPRESSION
     Dosage: TITRATED UP TO 150 MG DAILY EVERY MORNING AND 75 MG DAILY EVERY EVENING
     Dates: start: 20000101, end: 20100501
  2. EFFEXOR XR [Suspect]
     Indication: MIGRAINE
     Dosage: TITRATED UP TO 150 MG DAILY EVERY MORNING AND 75 MG DAILY EVERY EVENING
     Dates: start: 20100503
  3. TIZANIDINE [Concomitant]
     Indication: MIGRAINE
     Dosage: 2 MG; UP TO 5 DAILY AS NEEDED
  4. TRAZODONE HYDROCHLORIDE [Concomitant]
     Indication: DEPRESSION
     Dosage: UNKNOWN
     Dates: end: 20100501
  5. TRAZODONE HYDROCHLORIDE [Concomitant]
     Dates: start: 20100501
  6. POTASSIUM [Concomitant]
  7. HYDROCHLOROTHIAZIDE [Concomitant]
  8. MULTI-VITAMINS [Concomitant]
  9. ERGOCALCIFEROL [Concomitant]
  10. TOPAMAX [Concomitant]
     Indication: MIGRAINE
  11. VERAPAMIL HYDROCHLORIDE [Concomitant]

REACTIONS (7)
  - DISABILITY [None]
  - DRUG INEFFECTIVE [None]
  - DRUG WITHDRAWAL SYNDROME [None]
  - INFLUENZA LIKE ILLNESS [None]
  - MALAISE [None]
  - PYREXIA [None]
  - SUICIDAL IDEATION [None]
